FAERS Safety Report 20226024 (Version 1)
Quarter: 2021Q4

REPORT INFORMATION
  Report Type: Spontaneous
  Country: IN (occurrence: IN)
  Receive Date: 20211224
  Receipt Date: 20211224
  Transmission Date: 20220303
  Serious: Yes (Other)
  Sender: FDA-Public Use
  Company Number: IN-BoehringerIngelheim-2021-BI-144953

PATIENT
  Age: 70 Year
  Sex: Male

DRUGS (1)
  1. PRADAXA [Suspect]
     Active Substance: DABIGATRAN ETEXILATE MESYLATE
     Indication: Transient ischaemic attack
     Dates: end: 20211220

REACTIONS (2)
  - Loss of consciousness [Unknown]
  - Lumbar puncture [Unknown]
